FAERS Safety Report 11519891 (Version 1)
Quarter: 2015Q3

REPORT INFORMATION
  Report Type: Spontaneous
  Country: PL (occurrence: PL)
  Receive Date: 20150918
  Receipt Date: 20150918
  Transmission Date: 20151125
  Serious: Yes (Hospitalization, Other)
  Sender: FDA-Public Use
  Company Number: PL-ACCORD-033659

PATIENT
  Sex: Male

DRUGS (11)
  1. VINCRISTINE [Suspect]
     Active Substance: VINCRISTINE
     Indication: EPENDYMOMA MALIGNANT
  2. IFOSFAMIDE. [Suspect]
     Active Substance: IFOSFAMIDE
     Indication: EPENDYMOMA MALIGNANT
     Dates: start: 200912, end: 201005
  3. METHYLPREDNISOLONE. [Suspect]
     Active Substance: METHYLPREDNISOLONE
     Indication: EPENDYMOMA MALIGNANT
  4. HYDROXYCARBAMIDE [Suspect]
     Active Substance: HYDROXYUREA
     Indication: EPENDYMOMA MALIGNANT
  5. CISPLATIN. [Suspect]
     Active Substance: CISPLATIN
     Indication: EPENDYMOMA MALIGNANT
  6. TEMOZOLOMIDE. [Suspect]
     Active Substance: TEMOZOLOMIDE
     Indication: EPENDYMOMA MALIGNANT
  7. PROCARBAZINE [Suspect]
     Active Substance: PROCARBAZINE
     Indication: EPENDYMOMA MALIGNANT
  8. ETOPOSIDE. [Suspect]
     Active Substance: ETOPOSIDE
     Indication: EPENDYMOMA MALIGNANT
     Dates: start: 200912, end: 201005
  9. CARBOPLATIN. [Suspect]
     Active Substance: CARBOPLATIN
     Indication: EPENDYMOMA MALIGNANT
     Dosage: RECEIVED ADJUVANT CHEMOTHERAPY ACCORDING TO THE SCHEME ^8 IN 1^ FOR 3 CYCLES IN OCT AND NOV 2009.
  10. LOMUSTINE. [Suspect]
     Active Substance: LOMUSTINE
     Indication: EPENDYMOMA MALIGNANT
  11. CYTARABINE/CYTARABINE HYDROCHLORIDE/CYTARABINE OCFOSFATE [Suspect]
     Active Substance: CYTARABINE
     Indication: EPENDYMOMA MALIGNANT

REACTIONS (6)
  - Drug ineffective [Unknown]
  - Toxicity to various agents [None]
  - Pancytopenia [Unknown]
  - Off label use [Unknown]
  - Thrombocytopenia [Unknown]
  - Anaemia [Unknown]
